FAERS Safety Report 9718353 (Version 1)
Quarter: 2013Q4

REPORT INFORMATION
  Report Type: Spontaneous
  Country: US (occurrence: US)
  Receive Date: 20131125
  Receipt Date: 20131125
  Transmission Date: 20140711
  Serious: No
  Sender: FDA-Public Use
  Company Number: US-VIVUS-2013V1000027

PATIENT
  Age: 71 Year
  Sex: Female
  Weight: 93.07 kg

DRUGS (1)
  1. QSYMIA 3.75MG/23MG [Suspect]
     Indication: WEIGHT DECREASED
     Route: 048
     Dates: start: 201212

REACTIONS (7)
  - Angioedema [Recovered/Resolved]
  - Lip swelling [Unknown]
  - Tinnitus [Unknown]
  - Paraesthesia oral [Unknown]
  - Feeling abnormal [Unknown]
  - Paraesthesia [Recovered/Resolved]
  - Vision blurred [Unknown]
